FAERS Safety Report 16532797 (Version 1)
Quarter: 2019Q3

REPORT INFORMATION
  Report Type: Spontaneous
  Country: FR (occurrence: FR)
  Receive Date: 20190705
  Receipt Date: 20190705
  Transmission Date: 20191004
  Serious: Yes (Disabling)
  Sender: FDA-Public Use
  Company Number: FR-009507513-1906FRA004170

PATIENT
  Age: 70 Year
  Sex: Male

DRUGS (1)
  1. EZETROL [Suspect]
     Active Substance: EZETIMIBE
     Dosage: UNK
     Route: 048

REACTIONS (2)
  - Tendon rupture [Not Recovered/Not Resolved]
  - Tendonitis [Not Recovered/Not Resolved]

NARRATIVE: CASE EVENT DATE: 2019
